FAERS Safety Report 6020861-2 (Version None)
Quarter: 2008Q4

REPORT INFORMATION
  Report Type: 
  Country: None (occurrence: None)
  Receive Date: 20081229
  Receipt Date: 20081218
  Transmission Date: 20090506
  Serious: Yes (Other)
  Sender: FDA-Public Use
  Company Number: DE-BAYER-200833253GPV

PATIENT
  Age: 53 Year
  Sex: Male

DRUGS (1)
  1. SORAFENIB [Suspect]
     Indication: RENAL CELL CARCINOMA

REACTIONS (1)
  - PULMONARY EMBOLISM [None]
